FAERS Safety Report 6212609-3 (Version None)
Quarter: 2009Q2

REPORT INFORMATION
  Report Type: 
  Country: None (occurrence: None)
  Receive Date: 20090603
  Receipt Date: 20090526
  Transmission Date: 20091009
  Serious: Yes (Other)
  Sender: FDA-Public Use
  Company Number: US-AMGEN-QUU348709

PATIENT
  Sex: Female

DRUGS (3)
  1. ENBREL [Suspect]
     Indication: RHEUMATOID ARTHRITIS
     Route: 058
     Dates: start: 20060823
  2. METHOTREXATE [Concomitant]
  3. PREDNISONE [Concomitant]

REACTIONS (5)
  - INJECTION SITE PAIN [None]
  - LIVER FUNCTION TEST ABNORMAL [None]
  - RETINAL DETACHMENT [None]
  - RETINAL TEAR [None]
  - RHEUMATOID ARTHRITIS [None]
